FAERS Safety Report 25393274 (Version 2)
Quarter: 2025Q3

REPORT INFORMATION
  Report Type: Spontaneous
  Country: US (occurrence: US)
  Receive Date: 20250604
  Receipt Date: 20250722
  Transmission Date: 20251020
  Serious: Yes (Hospitalization, Other)
  Sender: ELI LILLY AND COMPANY
  Company Number: US-ELI_LILLY_AND_COMPANY-US202505024469

PATIENT
  Age: 74 Year
  Sex: Female
  Weight: 133 kg

DRUGS (12)
  1. MOUNJARO [Suspect]
     Active Substance: TIRZEPATIDE
     Indication: Type 2 diabetes mellitus
     Dosage: 5 MG, WEEKLY (1/W)
     Route: 065
     Dates: start: 20220427, end: 20231127
  2. VICTOZA [Concomitant]
     Active Substance: LIRAGLUTIDE
     Indication: Type 2 diabetes mellitus
     Dosage: 0.6 MG, DAILY
     Route: 065
     Dates: start: 20150915, end: 20150921
  3. VICTOZA [Concomitant]
     Active Substance: LIRAGLUTIDE
     Dosage: 1.2 MG, DAILY
     Route: 065
     Dates: start: 20150922, end: 20150928
  4. VICTOZA [Concomitant]
     Active Substance: LIRAGLUTIDE
     Dosage: 1.8 MG, DAILY
     Route: 065
     Dates: start: 20150929, end: 20161128
  5. VICTOZA [Concomitant]
     Active Substance: LIRAGLUTIDE
     Dosage: 1.8 MG, DAILY
     Route: 065
     Dates: start: 20170216, end: 20181113
  6. VICTOZA [Concomitant]
     Active Substance: LIRAGLUTIDE
     Dosage: 3 MG, WEEKLY (1/W)
     Route: 065
     Dates: start: 20210919, end: 20220523
  7. VICTOZA [Concomitant]
     Active Substance: LIRAGLUTIDE
     Dosage: 3 MG, WEEKLY (1/W)
     Route: 065
     Dates: start: 20220912, end: 20230330
  8. TRULICITY [Concomitant]
     Active Substance: DULAGLUTIDE
     Indication: Type 2 diabetes mellitus
     Dosage: 0.75 MG, WEEKLY (1/W)
     Route: 065
     Dates: start: 20190131, end: 20190131
  9. TRULICITY [Concomitant]
     Active Substance: DULAGLUTIDE
     Dosage: 1.5 MG, WEEKLY (1/W)
     Route: 065
     Dates: start: 20190227, end: 20240216
  10. SEMAGLUTIDE [Concomitant]
     Active Substance: SEMAGLUTIDE
     Indication: Type 2 diabetes mellitus
     Dosage: 0.25 MG, WEEKLY (1/W)
     Route: 065
     Dates: start: 20240328, end: 20240424
  11. SEMAGLUTIDE [Concomitant]
     Active Substance: SEMAGLUTIDE
     Dosage: 0.5 MG, WEEKLY (1/W)
     Route: 065
     Dates: start: 20240425, end: 20241021
  12. SEMAGLUTIDE [Concomitant]
     Active Substance: SEMAGLUTIDE
     Dosage: 1 MG, WEEKLY (1/W)
     Route: 065
     Dates: start: 20241029, end: 20250111

REACTIONS (4)
  - Impaired gastric emptying [Not Recovered/Not Resolved]
  - Nausea [Unknown]
  - Vomiting [Unknown]
  - Diarrhoea [Unknown]

NARRATIVE: CASE EVENT DATE: 20230627
